FAERS Safety Report 11159330 (Version 2)
Quarter: 2015Q2

REPORT INFORMATION
  Report Type: Spontaneous
  Country: US (occurrence: US)
  Receive Date: 20150603
  Receipt Date: 20150608
  Transmission Date: 20150821
  Serious: No
  Sender: FDA-Public Use
  Company Number: US-HORIZON-RAV-0020-2015

PATIENT
  Age: 37 Year
  Sex: Female

DRUGS (1)
  1. RAVICTI [Suspect]
     Active Substance: GLYCEROL PHENYLBUTYRATE
     Indication: ORNITHINE TRANSCARBAMOYLASE DEFICIENCY
     Dates: start: 20130711

REACTIONS (3)
  - Amino acid level increased [Unknown]
  - Fatigue [Unknown]
  - Headache [Recovered/Resolved]
